FAERS Safety Report 6988112-X (Version None)
Quarter: 2010Q3

REPORT INFORMATION
  Report Type: 
  Country: None (occurrence: None)
  Receive Date: 20100916
  Receipt Date: 20100908
  Transmission Date: 20110219
  Serious: Yes (Hospitalization)
  Sender: FDA-Public Use
  Company Number: B0673550A

PATIENT
  Sex: Male

DRUGS (9)
  1. ARIXTRA [Suspect]
     Indication: ERYSIPELAS
     Dosage: 7.5MG PER DAY
     Route: 058
     Dates: start: 20100816, end: 20100830
  2. KARDEGIC [Suspect]
     Route: 048
     Dates: end: 20100824
  3. PLAVIX [Suspect]
     Route: 048
     Dates: end: 20100824
  4. PYOSTACINE [Concomitant]
     Indication: ERYSIPELAS
     Dosage: 6TAB PER DAY
     Route: 048
     Dates: start: 20100816, end: 20100825
  5. ARICEPT [Concomitant]
     Route: 065
  6. PRAVASTATIN [Concomitant]
     Route: 065
  7. AMLODIPINE [Concomitant]
     Route: 065
  8. TARDYFERON [Concomitant]
     Route: 065
  9. ARANESP [Concomitant]
     Route: 065

REACTIONS (6)
  - HAEMATOMA [None]
  - HAEMOGLOBIN DECREASED [None]
  - OVERDOSE [None]
  - PAIN IN EXTREMITY [None]
  - PLATELET COUNT INCREASED [None]
  - SKIN HAEMORRHAGE [None]
